FAERS Safety Report 23342157 (Version 1)
Quarter: 2023Q4

REPORT INFORMATION
  Report Type: Spontaneous
  Country: US (occurrence: None)
  Receive Date: 20231226
  Receipt Date: 20231226
  Transmission Date: 20240110
  Serious: Yes (Hospitalization)
  Sender: FDA-Public Use
  Company Number: None

PATIENT
  Age: 61 Year
  Sex: Male

DRUGS (2)
  1. CABOMETYX [Suspect]
     Active Substance: CABOZANTINIB S-MALATE
     Dosage: FREQUENCY : DAILY;?
     Route: 048
     Dates: start: 20220803
  2. TRIAMTERENE [Concomitant]
     Active Substance: TRIAMTERENE
     Dates: start: 20230225

REACTIONS (1)
  - Pneumonia [None]

NARRATIVE: CASE EVENT DATE: 20231222
